FAERS Safety Report 9557288 (Version 1)
Quarter: 2013Q3

REPORT INFORMATION
  Report Type: Spontaneous
  Country: US (occurrence: US)
  Receive Date: 20130926
  Receipt Date: 20130926
  Transmission Date: 20140515
  Serious: Yes (Hospitalization)
  Sender: FDA-Public Use
  Company Number: US-MERCK-1309USA010042

PATIENT
  Sex: 0

DRUGS (1)
  1. NOXAFIL [Suspect]
     Indication: ZYGOMYCOSIS
     Dosage: UNK

REACTIONS (3)
  - Renal disorder [Unknown]
  - Electrolyte imbalance [Unknown]
  - Drug ineffective [Unknown]
